FAERS Safety Report 7534259-9 (Version None)
Quarter: 2011Q2

REPORT INFORMATION
  Report Type: 
  Country: None (occurrence: None)
  Receive Date: 20110608
  Receipt Date: 20070214
  Transmission Date: 20111010
  Serious: Yes (Hospitalization)
  Sender: FDA-Public Use
  Company Number: PHFR2007IE00806

PATIENT
  Sex: Female

DRUGS (6)
  1. DICLOFENAC SODIUM [Concomitant]
     Dosage: PRN
     Route: 065
  2. CLOZAPINE [Suspect]
     Indication: SCHIZOPHRENIA
     Dosage: 300 MG, UNK
     Route: 048
     Dates: start: 20050527
  3. TRAMADOL HCL [Concomitant]
     Dosage: PRN
     Route: 065
  4. ACETAMINOPHEN [Concomitant]
     Dosage: PRN
     Route: 065
  5. CITALOPRAM HYDROBROMIDE [Concomitant]
     Dosage: PRN
     Route: 065
  6. METOCLOPRAMIDE [Concomitant]
     Dosage: PRN
     Route: 065

REACTIONS (2)
  - CHOLELITHIASIS [None]
  - CHOLECYSTITIS [None]
